FAERS Safety Report 5707574-9 (Version None)
Quarter: 2008Q2

REPORT INFORMATION
  Report Type: 
  Country: None (occurrence: None)
  Receive Date: 20080416
  Receipt Date: 20080410
  Transmission Date: 20081010
  Serious: Yes (Hospitalization)
  Sender: FDA-Public Use
  Company Number: FR-MERCK-0804FRA00070

PATIENT
  Age: 51 Year
  Sex: Female

DRUGS (4)
  1. SINGULAIR [Suspect]
     Indication: ASTHMA
     Route: 048
     Dates: start: 20030101, end: 20070901
  2. FORMOTEROL FUMARATE [Concomitant]
     Indication: ASTHMA
  3. CORTICOSTEROIDS (UNSPECIFIED) [Concomitant]
     Indication: ASTHMA
  4. [THERAPY UNSPECIFIED] [Concomitant]
     Route: 048

REACTIONS (3)
  - CREST SYNDROME [None]
  - DYSKINESIA [None]
  - PULMONARY HYPERTENSION [None]
